FAERS Safety Report 5996534-9 (Version None)
Quarter: 2008Q4

REPORT INFORMATION
  Report Type: 
  Country: None (occurrence: None)
  Receive Date: 20081212
  Receipt Date: 20081017
  Transmission Date: 20090506
  Serious: No
  Sender: FDA-Public Use
  Company Number: US-ABBOTT-08P-163-0482549-00

PATIENT
  Sex: Female

DRUGS (1)
  1. HUMIRA [Suspect]
     Indication: ANKYLOSING SPONDYLITIS
     Route: 058
     Dates: start: 20080627

REACTIONS (9)
  - DIARRHOEA [None]
  - EAR DISCOMFORT [None]
  - HAEMOPTYSIS [None]
  - INJECTION SITE REACTION [None]
  - MALAISE [None]
  - OROPHARYNGEAL PAIN [None]
  - PRODUCTIVE COUGH [None]
  - URTICARIA [None]
  - VIRAL INFECTION [None]
